FAERS Safety Report 9513363 (Version 3)
Quarter: 2013Q3

REPORT INFORMATION
  Report Type: Spontaneous
  Country: GB (occurrence: GB)
  Receive Date: 20130910
  Receipt Date: 20130924
  Transmission Date: 20140515
  Serious: Yes (Other)
  Sender: FDA-Public Use
  Company Number: GB-ACTAVIS-2013-15658

PATIENT
  Sex: Male

DRUGS (3)
  1. DONEPEZIL (UNKNOWN) [Suspect]
     Indication: DEMENTIA ALZHEIMER^S TYPE
     Dosage: 5 MG, DAILY
     Route: 065
     Dates: start: 20130813, end: 20130815
  2. LEVEMIR [Concomitant]
     Indication: PRODUCT USED FOR UNKNOWN INDICATION
     Dosage: USUAL DOSAGE: 24 UNITS
     Route: 065
  3. LEVEMIR [Concomitant]
     Dosage: 15 IU, SINGLE
     Route: 065
     Dates: start: 20130815

REACTIONS (2)
  - Chest pain [Recovered/Resolved]
  - Blood glucose increased [Recovered/Resolved]
